FAERS Safety Report 9620643 (Version 1)
Quarter: 2013Q4

REPORT INFORMATION
  Report Type: Spontaneous
  Country: US (occurrence: US)
  Receive Date: 20131015
  Receipt Date: 20131015
  Transmission Date: 20140711
  Serious: No
  Sender: FDA-Public Use
  Company Number: US-009507513-1310USA004117

PATIENT
  Sex: Female

DRUGS (2)
  1. AZASITE [Suspect]
     Dosage: 1 DROP IN EACH EYE DAILY
     Route: 047
     Dates: start: 2013
  2. AZASITE [Suspect]
     Dosage: 1 DROP IN EACH EYE DAILY
     Route: 047

REACTIONS (2)
  - Eye irritation [Unknown]
  - Inappropriate schedule of drug administration [Unknown]
